FAERS Safety Report 4514434-8 (Version None)
Quarter: 2004Q4

REPORT INFORMATION
  Report Type: 
  Country: None (occurrence: None)
  Receive Date: 20041126
  Receipt Date: 20041110
  Transmission Date: 20050328
  Serious: Yes (Hospitalization, Other)
  Sender: FDA-Public Use
  Company Number: 15307

PATIENT
  Age: 73 Year
  Sex: Female
  Weight: 54.4316 kg

DRUGS (3)
  1. DAUNORUBICIN HCL [Suspect]
     Indication: ACUTE MYELOID LEUKAEMIA
     Dosage: 45 MG/M2
     Dates: start: 20041008, end: 20041026
  2. CIPROFLOXACIN [Concomitant]
  3. SYNTHROID [Concomitant]

REACTIONS (3)
  - BLOOD THROMBOPLASTIN INCREASED [None]
  - FEBRILE NEUTROPENIA [None]
  - SINUS TACHYCARDIA [None]
